FAERS Safety Report 11044701 (Version 3)
Quarter: 2015Q4

REPORT INFORMATION
  Report Type: Spontaneous
  Country: US (occurrence: US)
  Receive Date: 20150417
  Receipt Date: 20151123
  Transmission Date: 20160304
  Serious: No
  Sender: FDA-Public Use
  Company Number: US-009507513-0907USA02883

PATIENT
  Sex: Male

DRUGS (2)
  1. FINASTERIDE. [Suspect]
     Active Substance: FINASTERIDE
     Indication: ANDROGENETIC ALOPECIA
     Dosage: 1 MG, QD
     Route: 048
     Dates: start: 20031007, end: 20090715
  2. PROPECIA [Suspect]
     Active Substance: FINASTERIDE
     Indication: ANDROGENETIC ALOPECIA
     Dosage: 1 MG, QD
     Route: 048
     Dates: start: 20031007, end: 20120518

REACTIONS (14)
  - Heart rate increased [Unknown]
  - Loss of libido [Unknown]
  - Drug ineffective [Not Recovered/Not Resolved]
  - Self esteem decreased [Unknown]
  - Drug ineffective [Unknown]
  - Depression [Unknown]
  - Penis injury [Unknown]
  - Anxiety [Unknown]
  - Endocrine disorder [Unknown]
  - Alopecia [Not Recovered/Not Resolved]
  - Erectile dysfunction [Unknown]
  - Brain injury [Unknown]
  - Painful ejaculation [Unknown]
  - Hormone level abnormal [Unknown]

NARRATIVE: CASE EVENT DATE: 2003
